FAERS Safety Report 10415796 (Version 1)
Quarter: 2014Q3

REPORT INFORMATION
  Report Type: Spontaneous
  Country: DE (occurrence: None)
  Receive Date: 20140826
  Receipt Date: 20140826
  Transmission Date: 20150326
  Serious: Yes (Other)
  Sender: FDA-Public Use
  Company Number: 2495540

PATIENT
  Age: 49 Year

DRUGS (1)
  1. DOBUTAMINE HYDROCHLORIDE. [Suspect]
     Active Substance: DOBUTAMINE HYDROCHLORIDE
     Indication: CARDIAC OUTPUT DECREASED

REACTIONS (8)
  - Cardiac output decreased [None]
  - Left ventricle outflow tract obstruction [None]
  - Haemodynamic instability [None]
  - Hypovolaemia [None]
  - Endocarditis staphylococcal [None]
  - Sepsis [None]
  - Aortic stenosis [None]
  - Mitral valve incompetence [None]
